FAERS Safety Report 9155431 (Version 1)
Quarter: 2013Q1

REPORT INFORMATION
  Report Type: Spontaneous
  Country: US (occurrence: US)
  Receive Date: 20130311
  Receipt Date: 20130311
  Transmission Date: 20140127
  Serious: No
  Sender: FDA-Public Use
  Company Number: US-PFIZER INC-2013082196

PATIENT
  Age: 52 Year
  Sex: Female
  Weight: 68.48 kg

DRUGS (3)
  1. LYRICA [Suspect]
     Indication: FIBROMYALGIA
     Dosage: 75 MG, 3X/DAY
     Dates: end: 2013
  2. TOPIRAMATE [Concomitant]
     Indication: MIGRAINE
     Dosage: 100 MG, 2X/DAY
  3. ZOMIG [Concomitant]
     Indication: MIGRAINE
     Dosage: UNK, AS NEEDED

REACTIONS (1)
  - Pain [Not Recovered/Not Resolved]
